FAERS Safety Report 15861197 (Version 5)
Quarter: 2019Q2

REPORT INFORMATION
  Report Type: Report from Study
  Country: None (occurrence: US)
  Receive Date: 20190124
  Receipt Date: 20190507
  Transmission Date: 20190711
  Serious: Yes (Other)
  Sender: FDA-Public Use
  Company Number: US-ABBVIE-19K-163-2623251-00

PATIENT
  Age: 63 Year
  Sex: Female
  Weight: 46.31 kg

DRUGS (6)
  1. HUMIRA [Suspect]
     Active Substance: ADALIMUMAB
     Indication: PSORIASIS
     Route: 058
     Dates: start: 2017
  2. HUMIRA [Suspect]
     Active Substance: ADALIMUMAB
     Indication: PSORIATIC ARTHROPATHY
     Dosage: CF PEN
     Route: 058
  3. HUMIRA [Suspect]
     Active Substance: ADALIMUMAB
     Indication: PSORIATIC ARTHROPATHY
     Route: 058
     Dates: start: 2014, end: 2017
  4. HUMIRA [Suspect]
     Active Substance: ADALIMUMAB
     Indication: PSORIASIS
  5. OXYCODONE [Concomitant]
     Active Substance: OXYCODONE
     Indication: PAIN
  6. VALIUM [Concomitant]
     Active Substance: DIAZEPAM
     Indication: NERVE INJURY

REACTIONS (28)
  - Lung disorder [Unknown]
  - Adverse event [Unknown]
  - Pain [Recovering/Resolving]
  - Rash macular [Unknown]
  - Condition aggravated [Unknown]
  - Fall [Recovering/Resolving]
  - Fall [Recovered/Resolved]
  - Pain in extremity [Unknown]
  - Postoperative adhesion [Unknown]
  - Drug hypersensitivity [Unknown]
  - General physical health deterioration [Unknown]
  - Musculoskeletal disorder [Unknown]
  - Pain [Not Recovered/Not Resolved]
  - Arthralgia [Not Recovered/Not Resolved]
  - Medical device site joint swelling [Unknown]
  - Epistaxis [Unknown]
  - Adverse drug reaction [Unknown]
  - Skin cancer [Unknown]
  - Neoplasm malignant [Recovered/Resolved]
  - Nail injury [Recovering/Resolving]
  - Joint dislocation [Unknown]
  - Nasal cavity cancer [Unknown]
  - Myocardial infarction [Recovered/Resolved]
  - Rheumatoid arthritis [Unknown]
  - Fatigue [Recovering/Resolving]
  - Fall [Recovered/Resolved]
  - Facial paralysis [Recovering/Resolving]
  - Hiatus hernia [Unknown]

NARRATIVE: CASE EVENT DATE: 2016
